FAERS Safety Report 4666898-7 (Version None)
Quarter: 2005Q2

REPORT INFORMATION
  Report Type: 
  Country: None (occurrence: None)
  Receive Date: 20050518
  Receipt Date: 20040924
  Transmission Date: 20051028
  Serious: Yes (Hospitalization, Other)
  Sender: FDA-Public Use
  Company Number: 2004220652US

PATIENT
  Age: 37 Year
  Sex: Female

DRUGS (8)
  1. DEPO-PROVERA [Suspect]
     Indication: CONTRACEPTION
     Dosage: FIRST INJECT.;  UNK
     Dates: start: 20010101, end: 20010101
  2. DEPO-PROVERA [Suspect]
     Indication: CONTRACEPTION
     Dosage: FIRST INJECT.;  UNK
     Dates: start: 20030416, end: 20030416
  3. DEPO-PROVERA [Suspect]
     Indication: CONTRACEPTION
     Dosage: FIRST INJECT.;  UNK
     Dates: start: 20030707, end: 20030707
  4. DEPO-PROVERA [Suspect]
     Indication: CONTRACEPTION
     Dosage: FIRST INJECT.;  UNK
     Dates: start: 20030925, end: 20030925
  5. DEPO-PROVERA [Suspect]
     Indication: CONTRACEPTION
     Dosage: FIRST INJECT.;  UNK
     Dates: start: 20031211, end: 20031211
  6. DEPO-PROVERA [Suspect]
     Indication: CONTRACEPTION
     Dosage: 0
     Dates: start: 20040308, end: 20040308
  7. DEPO-PROVERA [Suspect]
     Indication: CONTRACEPTION
     Dosage: LAST INJECT.
     Dates: start: 20040524, end: 20040524
  8. VITAMINS [Concomitant]

REACTIONS (6)
  - BREAST TENDERNESS [None]
  - HOT FLUSH [None]
  - MENORRHAGIA [None]
  - METRORRHAGIA [None]
  - MOOD SWINGS [None]
  - UNINTENDED PREGNANCY [None]
